FAERS Safety Report 23398384 (Version 1)
Quarter: 2024Q1

REPORT INFORMATION
  Report Type: Spontaneous
  Country: US (occurrence: US)
  Receive Date: 20240112
  Receipt Date: 20240112
  Transmission Date: 20240410
  Serious: Yes (Other)
  Sender: FDA-Public Use
  Company Number: US-PFIZER INC-PV202400001523

PATIENT
  Age: 57 Year
  Sex: Male

DRUGS (3)
  1. PROCARDIA [Suspect]
     Active Substance: NIFEDIPINE
     Indication: Hypertension
     Dosage: EVERY DAY FOR OVER 30 YEARS
  2. PROCARDIA XL [Suspect]
     Active Substance: NIFEDIPINE
     Indication: Hypertension
     Dosage: EVERY MORNING, 1 PILL, BY MOUTH
     Route: 048
     Dates: start: 1991
  3. ASPIRIN [Concomitant]
     Active Substance: ASPIRIN
     Dosage: 1 EVERY DAY

REACTIONS (2)
  - Tooth loss [Unknown]
  - Off label use [Unknown]
